FAERS Safety Report 8221865 (Version 4)
Quarter: 2015Q4

REPORT INFORMATION
  Report Type: Spontaneous
  Country: US (occurrence: US)
  Receive Date: 20111102
  Receipt Date: 20151001
  Transmission Date: 20160305
  Serious: Yes (Other)
  Sender: FDA-Public Use
  Company Number: US-AMGEN-USASP2011056514

PATIENT
  Age: 59 Year
  Sex: Female
  Weight: 101.3 kg

DRUGS (6)
  1. BEVACIZUMAB [Concomitant]
     Active Substance: BEVACIZUMAB
     Indication: INVASIVE BREAST CARCINOMA
     Dosage: UNK, ON DAY 1
     Route: 042
     Dates: start: 20100610, end: 20101008
  2. DOXORUBICIN [Concomitant]
     Active Substance: DOXORUBICIN
     Indication: INVASIVE BREAST CARCINOMA
     Dosage: 60 MG/M2, PER CHEMO REGIM
     Route: 042
     Dates: start: 20100611, end: 20100723
  3. CYCLOPHOSPHAMIDE. [Concomitant]
     Active Substance: CYCLOPHOSPHAMIDE
     Indication: INVASIVE BREAST CARCINOMA
     Dosage: 600 MG/M2, PER CHEMO REGIM
     Route: 042
     Dates: start: 20100611, end: 20100723
  4. BEVACIZUMAB [Concomitant]
     Active Substance: BEVACIZUMAB
     Dosage: UNK, OVER 30- 90 MIN ON DAY I (CYCLES 1-4)
     Route: 042
  5. PEGFILGRASTIM [Suspect]
     Active Substance: PEGFILGRASTIM
     Indication: INVASIVE BREAST CARCINOMA
     Dosage: 6 MG, UNK
     Route: 058
     Dates: start: 20100612, end: 20100724
  6. PACLITAXEL. [Concomitant]
     Active Substance: PACLITAXEL
     Indication: INVASIVE BREAST CARCINOMA
     Dosage: 80 MG/M2, PER CHEMO REGIM
     Route: 042
     Dates: start: 20100611, end: 20101015

REACTIONS (2)
  - Ejection fraction decreased [Not Recovered/Not Resolved]
  - Left ventricular dysfunction [Not Recovered/Not Resolved]

NARRATIVE: CASE EVENT DATE: 20101029
